FAERS Safety Report 14794100 (Version 1)
Quarter: 2018Q2

REPORT INFORMATION
  Report Type: Spontaneous
  Country: US (occurrence: US)
  Receive Date: 20180423
  Receipt Date: 20180423
  Transmission Date: 20180711
  Serious: No
  Sender: FDA-Public Use
  Company Number: US-BAYER-2018-077832

PATIENT
  Sex: Female

DRUGS (13)
  1. CLIMARA [Concomitant]
     Active Substance: ESTRADIOL
  2. ZOCOR [Concomitant]
     Active Substance: SIMVASTATIN
  3. ZETIA [Concomitant]
     Active Substance: EZETIMIBE
  4. TOPIRAMATE. [Concomitant]
     Active Substance: TOPIRAMATE
  5. NORCO [Concomitant]
     Active Substance: ACETAMINOPHEN\HYDROCODONE BITARTRATE
  6. FISH OIL [Concomitant]
     Active Substance: FISH OIL
  7. BETASERON [Suspect]
     Active Substance: INTERFERON BETA-1B
     Indication: MULTIPLE SCLEROSIS
     Dosage: 0.25 MG, QOD
     Route: 058
     Dates: start: 20150321
  8. TIZANIDINE. [Concomitant]
     Active Substance: TIZANIDINE
  9. DULOXETINE. [Concomitant]
     Active Substance: DULOXETINE
  10. FUROSEMIDE. [Concomitant]
     Active Substance: FUROSEMIDE
  11. VITAMIN D [Concomitant]
     Active Substance: CHOLECALCIFEROL
  12. OMEPRAZOLE. [Concomitant]
     Active Substance: OMEPRAZOLE
  13. LISINOPRIL. [Concomitant]
     Active Substance: LISINOPRIL

REACTIONS (5)
  - Weight decreased [Not Recovered/Not Resolved]
  - Tremor [Not Recovered/Not Resolved]
  - Hypoaesthesia [Not Recovered/Not Resolved]
  - Paraesthesia [Not Recovered/Not Resolved]
  - Eye disorder [Not Recovered/Not Resolved]
